FAERS Safety Report 7221336-5 (Version None)
Quarter: 2011Q1

REPORT INFORMATION
  Report Type: 
  Country: None (occurrence: None)
  Receive Date: 20110112
  Receipt Date: 20110103
  Transmission Date: 20110831
  Serious: Yes (Hospitalization)
  Sender: FDA-Public Use
  Company Number: FR-SANOFI-AVENTIS-2011SA000294

PATIENT
  Age: 75 Year
  Sex: Male

DRUGS (9)
  1. FUCIDINE [Concomitant]
     Dosage: DOSE:1 UNIT(S)
     Route: 048
     Dates: start: 20100801, end: 20100905
  2. TENSTATEN [Concomitant]
     Route: 048
  3. RIFADINE [Suspect]
     Route: 048
     Dates: start: 20100719, end: 20100801
  4. TAHOR [Concomitant]
     Dates: end: 20100701
  5. TAHOR [Concomitant]
     Route: 048
     Dates: start: 20100722, end: 20100911
  6. RIFADINE [Interacting]
     Route: 065
     Dates: start: 20100905
  7. LEVOTHYROX [Interacting]
     Indication: HYPOTHYROIDISM
     Route: 048
  8. PERINDOPRIL [Concomitant]
     Route: 048
  9. SINTROM [Concomitant]
     Route: 048

REACTIONS (5)
  - HYPOTHYROIDISM [None]
  - RHABDOMYOLYSIS [None]
  - DRUG INTERACTION [None]
  - ASPHYXIA [None]
  - RENAL FAILURE ACUTE [None]
